FAERS Safety Report 7764341-2 (Version None)
Quarter: 2011Q3

REPORT INFORMATION
  Report Type: 
  Country: None (occurrence: None)
  Receive Date: 20110921
  Receipt Date: 20110916
  Transmission Date: 20111222
  Serious: Yes (Death, Other)
  Sender: FDA-Public Use
  Company Number: IE-BRISTOL-MYERS SQUIBB COMPANY-16073116

PATIENT
  Sex: Female

DRUGS (4)
  1. TRUVADA [Suspect]
     Dosage: 1DF: 1 TABS
     Dates: start: 20090416
  2. METHADONE HCL [Suspect]
  3. NORVIR [Suspect]
     Dates: start: 20090416
  4. ATAZANAVIR [Suspect]
     Dates: start: 20090416

REACTIONS (2)
  - DEATH [None]
  - CEREBRAL HAEMORRHAGE [None]
